FAERS Safety Report 20127342 (Version 1)
Quarter: 2021Q4

REPORT INFORMATION
  Report Type: Spontaneous
  Country: US (occurrence: US)
  Receive Date: 20211129
  Receipt Date: 20211129
  Transmission Date: 20220303
  Serious: Yes (Other)
  Sender: FDA-Public Use
  Company Number: US-SLATE RUN PHARMACEUTICALS-21US000811

PATIENT

DRUGS (7)
  1. VORICONAZOLE [Suspect]
     Active Substance: VORICONAZOLE
     Indication: Bronchopulmonary aspergillosis
     Dosage: UNK
  2. VORICONAZOLE [Suspect]
     Active Substance: VORICONAZOLE
     Indication: Disseminated aspergillosis
     Dosage: UNK
  3. TACROLIMUS [Concomitant]
     Active Substance: TACROLIMUS
     Indication: Immunosuppression
  4. MYCOPHENOLIC ACID [Concomitant]
     Active Substance: MYCOPHENOLIC ACID
     Indication: Immunosuppression
  5. PREDNISONE [Concomitant]
     Active Substance: PREDNISONE
     Indication: Immunosuppression
  6. MICAFUNGIN [Concomitant]
     Active Substance: MICAFUNGIN
     Indication: Bronchopulmonary aspergillosis
  7. MICAFUNGIN [Concomitant]
     Active Substance: MICAFUNGIN
     Indication: Disseminated aspergillosis

REACTIONS (3)
  - Pulmonary mass [Recovering/Resolving]
  - Pulmonary cavitation [Not Recovered/Not Resolved]
  - Drug resistance [Recovering/Resolving]
